FAERS Safety Report 4443944-7 (Version None)
Quarter: 2004Q3

REPORT INFORMATION
  Report Type: 
  Country: None (occurrence: None)
  Receive Date: 20040902
  Receipt Date: 20040818
  Transmission Date: 20050211
  Serious: Yes (Death)
  Sender: FDA-Public Use
  Company Number: 238728

PATIENT
  Age: 26 Year
  Sex: Male
  Weight: 108 kg

DRUGS (2)
  1. NOVOSEVEN [Suspect]
     Indication: TRAUMATIC HAEMORRHAGE
     Dosage: SEE IMAGE
     Route: 042
     Dates: start: 20040720
  2. NOVOSEVEN [Suspect]
     Indication: TRAUMATIC HAEMORRHAGE
     Dosage: SEE IMAGE
     Route: 042
     Dates: start: 20040721

REACTIONS (1)
  - DEATH [None]
